FAERS Safety Report 4943664-6 (Version None)
Quarter: 2006Q1

REPORT INFORMATION
  Report Type: 
  Country: None (occurrence: None)
  Receive Date: 20060314
  Receipt Date: 20050705
  Transmission Date: 20060701
  Serious: Yes (Hospitalization)
  Sender: FDA-Public Use
  Company Number: US-MERCK-0507USA00582

PATIENT
  Age: 62 Year
  Sex: Female
  Weight: 67 kg

DRUGS (2)
  1. VIOXX [Suspect]
     Indication: PAIN
     Route: 048
     Dates: start: 19990101
  2. ASPIRIN [Concomitant]
     Route: 065

REACTIONS (19)
  - BACK PAIN [None]
  - CEREBRAL INFARCTION [None]
  - CEREBROVASCULAR ACCIDENT [None]
  - DERMATITIS CONTACT [None]
  - DIZZINESS [None]
  - INGROWING NAIL [None]
  - JOINT SPRAIN [None]
  - LABYRINTHITIS [None]
  - NAIL TINEA [None]
  - NEUROMA [None]
  - ONYCHOMYCOSIS [None]
  - PERIPHERAL VASCULAR DISORDER [None]
  - PLANTAR FASCIITIS [None]
  - SINUS BRADYCARDIA [None]
  - SPINAL OSTEOARTHRITIS [None]
  - TENDONITIS [None]
  - TRANSIENT ISCHAEMIC ATTACK [None]
  - VENTRICULAR HYPERTROPHY [None]
  - VOMITING [None]
